FAERS Safety Report 17278619 (Version 1)
Quarter: 2020Q1

REPORT INFORMATION
  Report Type: Report from Study
  Country: BR (occurrence: BR)
  Receive Date: 20200116
  Receipt Date: 20200116
  Transmission Date: 20200409
  Serious: Yes (Other)
  Sender: FDA-Public Use
  Company Number: BR-JNJFOC-20171230368

PATIENT
  Age: 58 Year
  Sex: Female
  Weight: 53 kg

DRUGS (3)
  1. SIMPONI [Suspect]
     Active Substance: GOLIMUMAB
     Indication: RHEUMATOID ARTHRITIS
     Route: 058
     Dates: start: 20160916
  2. NEO FOLICO [Concomitant]
  3. METHOTREXATE. [Concomitant]
     Active Substance: METHOTREXATE

REACTIONS (2)
  - Ankylosing spondylitis [Unknown]
  - Uveitis [Unknown]

NARRATIVE: CASE EVENT DATE: 201712
